FAERS Safety Report 7115114-5 (Version None)
Quarter: 2010Q4

REPORT INFORMATION
  Report Type: 
  Country: None (occurrence: None)
  Receive Date: 20101116
  Receipt Date: 20101116
  Transmission Date: 20110411
  Serious: Yes (Hospitalization)
  Sender: FDA-Public Use
  Company Number: None

PATIENT
  Sex: Female
  Weight: 92.3 kg

DRUGS (2)
  1. CARBOPLATIN [Suspect]
     Dosage: 481 MG
  2. TAXOL [Suspect]
     Dosage: 204 MG

REACTIONS (1)
  - SUBCUTANEOUS ABSCESS [None]
